FAERS Safety Report 5512757-7 (Version None)
Quarter: 2007Q4

REPORT INFORMATION
  Report Type: 
  Country: None (occurrence: None)
  Receive Date: 20071108
  Receipt Date: 20071024
  Transmission Date: 20080405
  Serious: Yes (Other)
  Sender: FDA-Public Use
  Company Number: 163468USA

PATIENT
  Age: 72 Year
  Sex: Female

DRUGS (3)
  1. POLYETHYLENE GLYCOL [Suspect]
     Dosage: ORAL
     Route: 048
  2. BISACODYL [Suspect]
     Dosage: ORAL
     Route: 048
  3. MAGNESIUM CITRATE [Suspect]
     Dosage: ORAL
     Route: 048

REACTIONS (4)
  - MALLORY-WEISS SYNDROME [None]
  - MUCOSAL DISCOLOURATION [None]
  - PALLOR [None]
  - VOMITING [None]
